FAERS Safety Report 22293729 (Version 1)
Quarter: 2023Q2

REPORT INFORMATION
  Report Type: Spontaneous
  Country: US (occurrence: US)
  Receive Date: 20230508
  Receipt Date: 20230508
  Transmission Date: 20230721
  Serious: No
  Sender: FDA-Public Use
  Company Number: US-TEVA-2023-US-2879760

PATIENT
  Age: 7 Year
  Sex: Female
  Weight: 18.6 kg

DRUGS (4)
  1. PROGLYCEM [Suspect]
     Active Substance: DIAZOXIDE
     Indication: Hyperinsulinism
     Route: 065
     Dates: start: 20160419
  2. PROGLYCEM [Suspect]
     Active Substance: DIAZOXIDE
     Route: 065
     Dates: start: 20230322
  3. PROGLYCEM [Suspect]
     Active Substance: DIAZOXIDE
     Route: 065
     Dates: start: 20230405
  4. PROGLYCEM [Suspect]
     Active Substance: DIAZOXIDE
     Route: 065
     Dates: start: 20230412

REACTIONS (14)
  - Facial asymmetry [Unknown]
  - Decreased appetite [Unknown]
  - Hair growth abnormal [Unknown]
  - Abdominal pain upper [Unknown]
  - Thirst [Unknown]
  - Blood glucose decreased [Unknown]
  - Blood glucose increased [Unknown]
  - Intentional product misuse [Unknown]
  - Heart rate increased [Recovered/Resolved]
  - Vomiting [Recovered/Resolved]
  - Dyspnoea [Recovered/Resolved]
  - Emotional disorder [Unknown]
  - Dry mouth [Unknown]
  - Product supply issue [Unknown]

NARRATIVE: CASE EVENT DATE: 20230101
